FAERS Safety Report 7374598-8 (Version None)
Quarter: 2011Q1

REPORT INFORMATION
  Report Type: 
  Country: None (occurrence: None)
  Receive Date: 20110325
  Receipt Date: 20100416
  Transmission Date: 20110831
  Serious: No
  Sender: FDA-Public Use
  Company Number: US-MYLANLABS-2010S1006923

PATIENT
  Age: 59 Year
  Sex: Male
  Weight: 72.58 kg

DRUGS (3)
  1. SIMVASTATIN [Concomitant]
     Indication: BLOOD CHOLESTEROL INCREASED
     Dates: start: 20070101
  2. FENTANYL-100 [Suspect]
     Indication: BACK PAIN
     Dosage: CHANGED Q. 48 HOURS.
     Route: 062
     Dates: start: 20090301
  3. OXYCODONE [Concomitant]
     Indication: BREAKTHROUGH PAIN
     Dates: start: 20080101

REACTIONS (4)
  - MUSCLE TWITCHING [None]
  - BACK PAIN [None]
  - DRUG EFFECT DECREASED [None]
  - HYPERHIDROSIS [None]
